FAERS Safety Report 7058061-X (Version None)
Quarter: 2010Q4

REPORT INFORMATION
  Report Type: 
  Country: None (occurrence: None)
  Receive Date: 20101022
  Receipt Date: 20101001
  Transmission Date: 20110411
  Serious: Yes (Other)
  Sender: FDA-Public Use
  Company Number: DE-PFIZER INC-2010122770

PATIENT
  Age: 11 Year
  Sex: Male

DRUGS (2)
  1. SOMATROPIN [Suspect]
     Indication: GROWTH HORMONE DEFICIENCY
     Dosage: UNK MG, 1X/DAY
     Dates: start: 20040102
  2. SOMATROPIN [Suspect]
     Dosage: 1.2 MG, 1X/DAY
     Dates: start: 20040127

REACTIONS (2)
  - DEPRESSION [None]
  - PANIC ATTACK [None]
